FAERS Safety Report 9037858 (Version 1)
Quarter: 2013Q1

REPORT INFORMATION
  Report Type: Spontaneous
  Country: FR (occurrence: FR)
  Receive Date: 20130129
  Receipt Date: 20130129
  Transmission Date: 20140127
  Serious: Yes (Other)
  Sender: FDA-Public Use
  Company Number: FR-AMGEN-FRASP2013005790

PATIENT
  Age: 65 Year
  Sex: Male

DRUGS (4)
  1. VECTIBIX [Suspect]
     Indication: COLORECTAL CANCER
     Dosage: UNK
  2. FOLINIC ACID [Concomitant]
     Indication: COLORECTAL CANCER
     Dosage: UNK
  3. FLUOROURACIL [Concomitant]
     Indication: COLORECTAL CANCER
     Dosage: UNK
  4. OXALIPLATIN [Concomitant]
     Indication: COLORECTAL CANCER
     Dosage: UNK

REACTIONS (2)
  - Necrotising fasciitis [Unknown]
  - Musculoskeletal chest pain [Unknown]
